FAERS Safety Report 16481221 (Version 1)
Quarter: 2019Q2

REPORT INFORMATION
  Report Type: Spontaneous
  Country: US (occurrence: US)
  Receive Date: 20190626
  Receipt Date: 20190626
  Transmission Date: 20190711
  Serious: No
  Sender: FDA-Public Use
  Company Number: US-ACTELION-A-NJ2019-190793

PATIENT
  Sex: Male
  Weight: 59.41 kg

DRUGS (4)
  1. UPTRAVI [Suspect]
     Active Substance: SELEXIPAG
     Indication: PULMONARY HYPERTENSION
     Dosage: 600 MCG, BID
     Route: 048
  2. LETAIRIS [Concomitant]
     Active Substance: AMBRISENTAN
  3. TADALAFIL. [Concomitant]
     Active Substance: TADALAFIL
  4. AMLODIPINE [Concomitant]
     Active Substance: AMLODIPINE BESYLATE

REACTIONS (6)
  - Fatigue [Unknown]
  - Dyspnoea [Unknown]
  - Drug intolerance [Unknown]
  - Cardiomegaly [Unknown]
  - Chest discomfort [Unknown]
  - Brain natriuretic peptide increased [Unknown]
